FAERS Safety Report 7496963-0 (Version None)
Quarter: 2011Q2

REPORT INFORMATION
  Report Type: 
  Country: None (occurrence: None)
  Receive Date: 20110516
  Receipt Date: 20110503
  Transmission Date: 20111010
  Serious: Yes (Death, Hospitalization)
  Sender: FDA-Public Use
  Company Number: 2011MA004900

PATIENT
  Age: 41 Year
  Sex: Male

DRUGS (1)
  1. CARBAMAZEPINE [Suspect]
     Indication: EPILEPSY

REACTIONS (11)
  - STEVENS-JOHNSON SYNDROME [None]
  - CARDIAC ARREST [None]
  - PULMONARY CONGESTION [None]
  - CARDIOGENIC SHOCK [None]
  - CORONARY ARTERY DISEASE [None]
  - MYOCARDIAL INFARCTION [None]
  - EOSINOPHILIC MYOCARDITIS [None]
  - DYSPNOEA [None]
  - HEPATOSPLENOMEGALY [None]
  - CARDIAC FAILURE [None]
  - HYPERSENSITIVITY [None]
